FAERS Safety Report 6906997-X (Version None)
Quarter: 2010Q3

REPORT INFORMATION
  Report Type: 
  Country: None (occurrence: None)
  Receive Date: 20100804
  Receipt Date: 20080512
  Transmission Date: 20110219
  Serious: Yes (Hospitalization, Other)
  Sender: FDA-Public Use
  Company Number: IT-PFIZER INC-2008026991

PATIENT
  Sex: Male
  Weight: 87 kg

DRUGS (3)
  1. MARAVIROC [Suspect]
     Indication: HIV INFECTION
     Dosage: BID EVERY DAY
     Route: 048
     Dates: start: 20071019
  2. ETRAVIRINE [Concomitant]
     Route: 048
     Dates: start: 20071019
  3. RALTEGRAVIR [Concomitant]
     Route: 048
     Dates: start: 20071019

REACTIONS (1)
  - ANAL CANCER STAGE III [None]
